FAERS Safety Report 18114814 (Version 4)
Quarter: 2023Q2

REPORT INFORMATION
  Report Type: Spontaneous
  Country: US (occurrence: US)
  Receive Date: 20200805
  Receipt Date: 20230622
  Transmission Date: 20230722
  Serious: Yes (Hospitalization)
  Sender: FDA-Public Use
  Company Number: US-PFIZER INC-2020294942

PATIENT
  Age: 68 Year
  Sex: Female

DRUGS (3)
  1. IBRANCE [Suspect]
     Active Substance: PALBOCICLIB
     Indication: Breast cancer female
     Dosage: 100 MG, CYCLIC(QD(ONCE) X 21 DAYS Q 28 DAYS)
     Route: 048
     Dates: start: 20200416
  2. IBRANCE [Suspect]
     Active Substance: PALBOCICLIB
     Dosage: 100 MG, CYCLIC, TAKE 1 TABLET BY MOUTH DAILY FOR DAYS 1-21 OF A 28 DAY CYCLE.
     Route: 048
  3. ANASTROZOLE [Concomitant]
     Active Substance: ANASTROZOLE
     Dosage: UNK

REACTIONS (4)
  - Gastrointestinal disorder [Unknown]
  - Product dose omission issue [Unknown]
  - Bronchitis [Unknown]
  - Cough [Unknown]
